FAERS Safety Report 19376887 (Version 1)
Quarter: 2021Q2

REPORT INFORMATION
  Report Type: Spontaneous
  Country: GB (occurrence: GB)
  Receive Date: 20210605
  Receipt Date: 20210605
  Transmission Date: 20210717
  Serious: Yes (Hospitalization)
  Sender: FDA-Public Use
  Company Number: GB-TEVA-2021-GB-1906369

PATIENT
  Age: 70 Year
  Sex: Male
  Weight: 68.76 kg

DRUGS (16)
  1. LACTULOSE. [Concomitant]
     Active Substance: LACTULOSE
     Indication: CONSTIPATION
     Dosage: EVERY 0.5 DAY
     Route: 065
     Dates: start: 20210318
  2. DOCUSATE SODIUM. [Concomitant]
     Active Substance: DOCUSATE SODIUM
     Indication: CONSTIPATION
     Dosage: EVERY 0.5 DAY
     Route: 065
     Dates: start: 20210318
  3. ETOPOSIDE. [Suspect]
     Active Substance: ETOPOSIDE
     Indication: SMALL CELL LUNG CANCER EXTENSIVE STAGE
     Dosage: 240 MG
     Route: 065
     Dates: start: 20200706
  4. SENNA [Concomitant]
     Active Substance: SENNA LEAF\SENNOSIDES\SENNOSIDES A AND B
     Indication: CONSTIPATION
     Route: 065
     Dates: start: 20210318
  5. FLUDROCORTISONE [Concomitant]
     Active Substance: FLUDROCORTISONE
     Dosage: EVERY 1 DAY
     Route: 065
     Dates: start: 20210318
  6. PARACETAMOL [Concomitant]
     Active Substance: ACETAMINOPHEN
     Route: 065
     Dates: start: 20200713
  7. CYCLIZINE [Concomitant]
     Active Substance: CYCLIZINE
     Indication: VOMITING
     Dosage: EVERY 0.33 DAY
     Route: 065
     Dates: start: 20210318
  8. CARBOPLATIN. [Suspect]
     Active Substance: CARBOPLATIN
     Indication: SMALL CELL LUNG CANCER EXTENSIVE STAGE
     Dosage: 560 MG
     Route: 065
     Dates: start: 20200706
  9. CYCLIZINE [Concomitant]
     Active Substance: CYCLIZINE
     Indication: NAUSEA
  10. KETOPROFEN. [Concomitant]
     Active Substance: KETOPROFEN
     Indication: PRODUCT USED FOR UNKNOWN INDICATION
  11. ETOPOSIDE. [Suspect]
     Active Substance: ETOPOSIDE
     Dosage: 1200 MILLIGRAM DAILY;
     Dates: start: 20200707
  12. ATEZOLIZUMAB. [Suspect]
     Active Substance: ATEZOLIZUMAB
     Indication: SMALL CELL LUNG CANCER EXTENSIVE STAGE
     Dosage: ON 22/FEB/2021, HE RECEIVED LAST DOSE OF ATEZOLIZUMAB 1200 MG PRIOR TO SERIOUS ADVERSE EVENT, 1200 M
     Route: 041
     Dates: start: 20200706
  13. FLUTICASONE. [Concomitant]
     Active Substance: FLUTICASONE
     Indication: NASAL CONGESTION
     Dosage: 1 AS NECESSARY
     Route: 065
     Dates: start: 20210318
  14. METOCLOPRAMIDE. [Concomitant]
     Active Substance: METOCLOPRAMIDE
     Dosage: 1 AS NECESSARY
     Route: 065
     Dates: start: 202006
  15. MORPHINE [Concomitant]
     Active Substance: MORPHINE
     Indication: PAIN MANAGEMENT
     Dosage: 1 AS NECESSARY
     Route: 065
     Dates: start: 20210318
  16. OMEPRAZOLE. [Concomitant]
     Active Substance: OMEPRAZOLE
     Dosage: EVERY 1 DAY
     Route: 065

REACTIONS (2)
  - Hypotension [Unknown]
  - Pneumonia [Recovering/Resolving]

NARRATIVE: CASE EVENT DATE: 20210401
